FAERS Safety Report 10221899 (Version 2)
Quarter: 2014Q2

REPORT INFORMATION
  Report Type: Report from Study
  Country: US (occurrence: US)
  Receive Date: 20140606
  Receipt Date: 20140606
  Transmission Date: 20141212
  Serious: Yes (Hospitalization)
  Sender: FDA-Public Use
  Company Number: US-BIOMARINAP-US-2013-101368

PATIENT
  Age: 8 Year
  Sex: Female

DRUGS (3)
  1. NAGLAZYME [Suspect]
     Indication: MUCOPOLYSACCHARIDOSIS VI
     Dosage: 20 MG, QW
     Route: 041
     Dates: start: 20081114
  2. BENADRYL                           /00000402/ [Concomitant]
     Indication: PREMEDICATION
     Dosage: 1 MG/KG, UNK
     Route: 048
  3. TYLENOL                            /00020001/ [Concomitant]
     Indication: PREMEDICATION
     Dosage: 15 MG/KG, UNK
     Route: 048

REACTIONS (1)
  - Developmental hip dysplasia [Recovered/Resolved]
